FAERS Safety Report 5669935-6 (Version None)
Quarter: 2008Q1

REPORT INFORMATION
  Report Type: 
  Country: None (occurrence: None)
  Receive Date: 20080317
  Receipt Date: 20080307
  Transmission Date: 20080703
  Serious: Yes (Other)
  Sender: FDA-Public Use
  Company Number: GB-PFIZER INC-2008022378

PATIENT
  Age: 77 Year
  Sex: Male
  Weight: 69 kg

DRUGS (9)
  1. XALATAN [Suspect]
     Indication: GLAUCOMA
     Dates: start: 20080211, end: 20080215
  2. AMLODIPINE [Concomitant]
  3. ACETYLSALICYLIC ACID [Concomitant]
  4. ATENOLOL [Concomitant]
  5. BICALUTAMIDE [Concomitant]
  6. IMDUR [Concomitant]
  7. LANSOPRAZOLE [Concomitant]
  8. SIMVASTATIN [Concomitant]
  9. TEOPTIC [Concomitant]

REACTIONS (2)
  - CHEST PAIN [None]
  - WHEEZING [None]
